FAERS Safety Report 7201888-1 (Version None)
Quarter: 2010Q4

REPORT INFORMATION
  Report Type: 
  Country: None (occurrence: None)
  Receive Date: 20101229
  Receipt Date: 20101220
  Transmission Date: 20110411
  Serious: Yes (Other)
  Sender: FDA-Public Use
  Company Number: FR-ASTRAZENECA-2010SE60326

PATIENT
  Age: 24579 Day
  Sex: Female

DRUGS (8)
  1. NEXIUM [Suspect]
     Indication: PRODUCT USED FOR UNKNOWN INDICATION
     Route: 048
     Dates: start: 20100901
  2. ELUDRIL [Suspect]
     Route: 048
     Dates: start: 20100901
  3. FOSAMAX [Suspect]
     Route: 048
  4. DEXERYL [Suspect]
     Route: 061
     Dates: start: 20100901
  5. AFINITOR [Suspect]
     Indication: RENAL CANCER METASTATIC
     Route: 048
     Dates: start: 20100801, end: 20101125
  6. LEVOTHYROX [Suspect]
     Route: 048
  7. IMODIUM [Suspect]
     Route: 048
     Dates: start: 20100901
  8. CLARITIN [Suspect]
     Indication: RASH
     Route: 048
     Dates: start: 20100929

REACTIONS (3)
  - COUGH [None]
  - LUNG DISORDER [None]
  - PYREXIA [None]
